FAERS Safety Report 24109384 (Version 2)
Quarter: 2025Q4

REPORT INFORMATION
  Report Type: Report from Study
  Country: US (occurrence: US)
  Receive Date: 20240718
  Receipt Date: 20251116
  Transmission Date: 20260118
  Serious: Yes (Hospitalization, Other)
  Sender: SANOFI AVENTIS
  Company Number: US-SA-2019SA063685

PATIENT
  Age: 9 Year
  Sex: Female
  Weight: 56.69 kg

DRUGS (22)
  1. IMIGLUCERASE [Suspect]
     Active Substance: IMIGLUCERASE
     Indication: Gaucher^s disease
     Dosage: 2400 IU, QW
     Route: 041
     Dates: start: 20090724
  2. IMIGLUCERASE [Suspect]
     Active Substance: IMIGLUCERASE
     Indication: Fabry^s disease
     Dosage: 2800 IU, QW
     Route: 041
  3. IMIGLUCERASE [Suspect]
     Active Substance: IMIGLUCERASE
     Indication: Gaucher^s disease type III
     Dosage: 600 IU, QW
     Route: 041
  4. IMIGLUCERASE [Suspect]
     Active Substance: IMIGLUCERASE
     Dosage: 3600 IU, QOW
     Route: 041
     Dates: start: 20180605
  5. IMIGLUCERASE [Suspect]
     Active Substance: IMIGLUCERASE
     Dosage: 3600 TOTAL, QW
     Route: 042
  6. HEPARIN [Concomitant]
     Active Substance: HEPARIN SODIUM
     Dosage: UNK
     Route: 065
  7. SODIUM CHLORIDE [Concomitant]
     Active Substance: SODIUM CHLORIDE
     Dosage: UNK
     Route: 065
  8. WATER FOR INJECTION [Concomitant]
     Active Substance: WATER
     Indication: Vehicle solution use
     Dosage: UNK
     Route: 065
  9. EPINEPHRINE [Concomitant]
     Active Substance: EPINEPHRINE
     Dosage: UNK
     Route: 065
  10. LIDOCAINE [Concomitant]
     Active Substance: LIDOCAINE
     Dosage: UNK
     Route: 065
  11. DIETARY SUPPLEMENT\PROBIOTICS [Concomitant]
     Active Substance: DIETARY SUPPLEMENT\PROBIOTICS NOS
     Dosage: UNK
     Route: 065
  12. FLUTICASONE PROPIONATE [Concomitant]
     Active Substance: FLUTICASONE PROPIONATE
     Dosage: UNK
     Route: 065
  13. ZYRTEC [Concomitant]
     Active Substance: CETIRIZINE HYDROCHLORIDE
     Dosage: UNK
     Route: 065
  14. AZITHROMYCIN [Concomitant]
     Active Substance: AZITHROMYCIN
     Dosage: UNK
     Route: 065
  15. FYCOMPA [Concomitant]
     Active Substance: PERAMPANEL
     Dosage: 4 MG, QD
     Route: 065
  16. TUMS CHEWIES [Concomitant]
     Dosage: UNK
  17. PROAIR HFA [Concomitant]
     Active Substance: ALBUTEROL SULFATE
     Dosage: PROAIR HFA HFA AER AD
  18. ADVAIR HFA [Concomitant]
     Active Substance: FLUTICASONE PROPIONATE\SALMETEROL XINAFOATE
     Dosage: ADVAIR HFA HFA AER AD
  19. VITAMIN D NOS [Concomitant]
     Active Substance: CHOLECALCIFEROL\ERGOCALCIFEROL
     Dosage: UNK
  20. SODIUM CHLORIDE [Concomitant]
     Active Substance: SODIUM CHLORIDE
     Dosage: UNK
  21. ALBUTEROL SULFATE [Concomitant]
     Active Substance: ALBUTEROL SULFATE
     Dosage: UNK
  22. VITAMINS NOS [Concomitant]
     Active Substance: VITAMINS
     Dosage: UNK

REACTIONS (11)
  - Deafness unilateral [Not Recovered/Not Resolved]
  - Hip fracture [Not Recovered/Not Resolved]
  - Hip surgery [Unknown]
  - Hospitalisation [Recovered/Resolved]
  - Hospitalisation [Unknown]
  - Pain in extremity [Not Recovered/Not Resolved]
  - Eye disorder [Not Recovered/Not Resolved]
  - Ear infection [Unknown]
  - COVID-19 [Unknown]
  - Off label use [Unknown]
  - Product use in unapproved indication [Unknown]

NARRATIVE: CASE EVENT DATE: 20180101
